FAERS Safety Report 7640627-7 (Version None)
Quarter: 2011Q3

REPORT INFORMATION
  Report Type: 
  Country: None (occurrence: None)
  Receive Date: 20110721
  Receipt Date: 20110708
  Transmission Date: 20111222
  Serious: Yes (Other)
  Sender: FDA-Public Use
  Company Number: 2011ST000144

PATIENT
  Age: 15 Year
  Sex: Female
  Weight: 65 kg

DRUGS (4)
  1. BRIKLIN [Concomitant]
  2. SEPTRA [Concomitant]
  3. MEROPENEM [Concomitant]
  4. ABELCET [Suspect]
     Indication: FEBRILE BONE MARROW APLASIA
     Dosage: 200 MG;QD: IV
     Route: 042
     Dates: start: 20110105, end: 20110221

REACTIONS (9)
  - HEART RATE INCREASED [None]
  - BLOOD CULTURE POSITIVE [None]
  - CHILLS [None]
  - BLOOD PRESSURE DECREASED [None]
  - CYANOSIS [None]
  - PYREXIA [None]
  - OXYGEN SATURATION DECREASED [None]
  - PSEUDOMONAS TEST POSITIVE [None]
  - APLASIA [None]
